FAERS Safety Report 6806682-9 (Version None)
Quarter: 2010Q2

REPORT INFORMATION
  Report Type: 
  Country: None (occurrence: None)
  Receive Date: 20100629
  Receipt Date: 20080411
  Transmission Date: 20101027
  Serious: No
  Sender: FDA-Public Use
  Company Number: US-PFIZER INC-2008032556

PATIENT
  Sex: Female
  Weight: 92.08 kg

DRUGS (8)
  1. TIKOSYN [Suspect]
     Indication: ATRIAL FIBRILLATION
     Dates: start: 20080328
  2. METOPROLOL [Concomitant]
  3. VALSARTAN [Concomitant]
  4. LASIX [Concomitant]
  5. PREMARIN [Concomitant]
  6. DETROL LA [Concomitant]
  7. PRAVACHOL [Concomitant]
  8. COUMADIN [Concomitant]

REACTIONS (1)
  - BLADDER PAIN [None]
